FAERS Safety Report 17515218 (Version 2)
Quarter: 2020Q2

REPORT INFORMATION
  Report Type: Report from Study
  Country: None (occurrence: US)
  Receive Date: 20200309
  Receipt Date: 20200613
  Transmission Date: 20200713
  Serious: Yes (Hospitalization, Other)
  Sender: FDA-Public Use
  Company Number: US-ABBVIE-20K-163-3308186-00

PATIENT
  Sex: Male

DRUGS (1)
  1. CREON [Suspect]
     Active Substance: PANCRELIPASE AMYLASE\PANCRELIPASE LIPASE\PANCRELIPASE PROTEASE
     Indication: PRODUCT USED FOR UNKNOWN INDICATION
     Dosage: EIGHT CAPSULES PER DAY. TWO WITH MEALS AND ONE WITH SNACK
     Route: 048

REACTIONS (4)
  - Malaise [Not Recovered/Not Resolved]
  - Hospitalisation [Unknown]
  - Pancreatic carcinoma stage III [Unknown]
  - Skin laceration [Unknown]
